FAERS Safety Report 25959164 (Version 1)
Quarter: 2025Q4

REPORT INFORMATION
  Report Type: Spontaneous
  Country: KW (occurrence: KW)
  Receive Date: 20251025
  Receipt Date: 20251025
  Transmission Date: 20260117
  Serious: Yes (Disabling)
  Sender: CSL BEHRING
  Company Number: KW-BEH-2025222573

PATIENT
  Sex: Male
  Weight: 83 kg

DRUGS (6)
  1. KORSUVA [Suspect]
     Active Substance: DIFELIKEFALIN ACETATE
     Indication: Chronic kidney disease-associated pruritus
     Dosage: 0.8 ML, POST DIALYSIS
     Route: 042
     Dates: start: 20250415, end: 20250722
  2. KORSUVA [Suspect]
     Active Substance: DIFELIKEFALIN ACETATE
     Dosage: 0.8 ML, POST DIALYSIS
     Route: 042
     Dates: start: 20250928, end: 20251012
  3. OZEMPIC [Concomitant]
     Active Substance: SEMAGLUTIDE
     Indication: Diabetes mellitus
     Dosage: 1 MG
     Route: 058
  4. OZEMPIC [Concomitant]
     Active Substance: SEMAGLUTIDE
     Indication: Weight control
  5. ARANESP [Concomitant]
     Active Substance: DARBEPOETIN ALFA
     Indication: Anaemia
     Dosage: 60 MG
     Route: 065
  6. PARSABIV [Concomitant]
     Active Substance: ETELCALCETIDE HYDROCHLORIDE
     Indication: Bone disorder
     Dosage: 5 MG
     Route: 065

REACTIONS (9)
  - Hypotension [Recovered/Resolved]
  - Dizziness [Recovered/Resolved]
  - Fatigue [Recovered/Resolved]
  - Hypotension [Recovered/Resolved]
  - Bradyarrhythmia [Recovered/Resolved]
  - Atrioventricular block complete [Unknown]
  - Dizziness [Recovered/Resolved]
  - Fatigue [Recovered/Resolved]
  - Pruritus [Unknown]

NARRATIVE: CASE EVENT DATE: 20250101
